FAERS Safety Report 11854289 (Version 1)
Quarter: 2015Q4

REPORT INFORMATION
  Report Type: Spontaneous
  Country: US (occurrence: US)
  Receive Date: 20151221
  Receipt Date: 20151221
  Transmission Date: 20160305
  Serious: Yes (Other)
  Sender: FDA-Public Use
  Company Number: US-JNJFOC-20151206760

PATIENT
  Age: 56 Year
  Sex: Female
  Weight: 68.04 kg

DRUGS (3)
  1. ZYRTEC [Suspect]
     Active Substance: CETIRIZINE HYDROCHLORIDE
     Route: 048
  2. CETIRIZINE HYDROCHLORIDE. [Suspect]
     Active Substance: CETIRIZINE HYDROCHLORIDE
     Indication: SYSTEMIC MASTOCYTOSIS
     Route: 065
  3. ZYRTEC [Suspect]
     Active Substance: CETIRIZINE HYDROCHLORIDE
     Indication: SYSTEMIC MASTOCYTOSIS
     Dosage: 1 TABLET, DAILY AND SOMETIMES 2 TABLETS A DAY.??RECEIVED FROM 6 YEARS
     Route: 048

REACTIONS (4)
  - Product use issue [Not Recovered/Not Resolved]
  - Glaucoma [Recovered/Resolved]
  - Overdose [Not Recovered/Not Resolved]
  - Off label use [Not Recovered/Not Resolved]
